FAERS Safety Report 8835947 (Version 1)
Quarter: 2012Q4

REPORT INFORMATION
  Report Type: 
  Country: US (occurrence: US)
  Receive Date: 20121011
  Receipt Date: 20121011
  Transmission Date: 20130627
  Serious: No
  Sender: FDA-Public Use
  Company Number: US-009507513-1210USA003629

PATIENT
  Age: 23 Year
  Sex: Female

DRUGS (1)
  1. MAXALT [Suspect]
     Indication: MIGRAINE
     Dosage: 5 mg
     Route: 048
     Dates: start: 20120508, end: 20120601

REACTIONS (1)
  - Drug ineffective [Unknown]
